FAERS Safety Report 6961423-X (Version None)
Quarter: 2010Q3

REPORT INFORMATION
  Report Type: 
  Country: None (occurrence: None)
  Receive Date: 20100901
  Receipt Date: 20100825
  Transmission Date: 20110219
  Serious: Yes (Hospitalization, Disabling, Other)
  Sender: FDA-Public Use
  Company Number: PHHY2010CA40991

PATIENT
  Sex: Male

DRUGS (7)
  1. CLOZARIL [Suspect]
     Indication: SCHIZOPHRENIA
     Dosage: 200 MG
     Route: 048
     Dates: start: 19900828
  2. CLOZARIL [Suspect]
     Dosage: 175 MG
  3. CLOZARIL [Suspect]
     Dosage: 375 MG
  4. RIVOTRIL [Concomitant]
     Dosage: 1 MG, TID
  5. DESMOPRESSIN ACETATE [Concomitant]
     Dosage: 0.1 MG HS
  6. DOXYCYCLINE [Concomitant]
     Dosage: 100 MG, QD
  7. LAMICTAL [Concomitant]
     Dosage: 150 MG, BID

REACTIONS (2)
  - DIPLEGIA [None]
  - INCONTINENCE [None]
